FAERS Safety Report 12216469 (Version 1)
Quarter: 2016Q1

REPORT INFORMATION
  Report Type: Spontaneous
  Country: US (occurrence: None)
  Receive Date: 20160328
  Receipt Date: 20160328
  Transmission Date: 20160526
  Serious: Yes (Hospitalization)
  Sender: FDA-Public Use
  Company Number: None

PATIENT
  Age: 46 Year
  Sex: Male
  Weight: 90.5 kg

DRUGS (2)
  1. WARFARIN [Suspect]
     Active Substance: WARFARIN
     Indication: TRUNCUS COELIACUS THROMBOSIS
     Route: 048
     Dates: start: 20150609, end: 20160323
  2. ENOXAPARIN [Suspect]
     Active Substance: ENOXAPARIN
     Route: 058

REACTIONS (2)
  - Haematoma [None]
  - International normalised ratio decreased [None]

NARRATIVE: CASE EVENT DATE: 20160323
